FAERS Safety Report 25685516 (Version 1)
Quarter: 2025Q3

REPORT INFORMATION
  Report Type: Spontaneous
  Country: US (occurrence: None)
  Receive Date: 20250814
  Receipt Date: 20250814
  Transmission Date: 20251020
  Serious: Yes (Death, Hospitalization)
  Sender: FDA-CTU
  Company Number: None

PATIENT
  Age: 37 Year
  Sex: Female
  Weight: 105.75 kg

DRUGS (6)
  1. BACLOFEN [Suspect]
     Active Substance: BACLOFEN
     Dosage: OTHER QUANTITY : 2 CAPSULE(S);?FREQUENCY : EVERY 12 HOURS;?
     Route: 048
     Dates: start: 20210709, end: 20250810
  2. OXYCONTIN [Concomitant]
     Active Substance: OXYCODONE HYDROCHLORIDE
  3. GABAPENTIN [Concomitant]
     Active Substance: GABAPENTIN
  4. CANNABIS SATIVA SUBSP. INDICA TOP [Concomitant]
     Active Substance: CANNABIS SATIVA SUBSP. INDICA TOP
  5. PROPRANOLOL HYDROCHLORIDE [Concomitant]
     Active Substance: PROPRANOLOL HYDROCHLORIDE
  6. ST. JOHN^S WORT [Concomitant]
     Active Substance: ST. JOHN^S WORT

REACTIONS (15)
  - Muscle spasms [None]
  - Victim of abuse [None]
  - Drug monitoring procedure not performed [None]
  - Renal disorder [None]
  - Myocardial infarction [None]
  - Product prescribing issue [None]
  - Brief resolved unexplained event [None]
  - Communication disorder [None]
  - Head injury [None]
  - Memory impairment [None]
  - Gait disturbance [None]
  - Confusional state [None]
  - Feeling abnormal [None]
  - Rocky mountain spotted fever [None]
  - Lyme disease [None]

NARRATIVE: CASE EVENT DATE: 20210711
